FAERS Safety Report 4502365-9 (Version None)
Quarter: 2004Q4

REPORT INFORMATION
  Report Type: 
  Country: None (occurrence: None)
  Receive Date: 20041110
  Receipt Date: 20041030
  Transmission Date: 20050328
  Serious: Yes (Hospitalization, Other)
  Sender: FDA-Public Use
  Company Number: 2004076910

PATIENT
  Age: 72 Year
  Sex: Female

DRUGS (10)
  1. SULPERAZON (CEFOPERAZONE, SULBACTAM) [Suspect]
     Indication: ILL-DEFINED DISORDER
     Dosage: 1 GRAM (1 GRAM,1 IN 1 D), INTRAVENOUS
     Route: 042
     Dates: start: 20040928, end: 20040928
  2. FUROSEMIDE [Concomitant]
  3. SODIUM BICARBONATE [Concomitant]
  4. ACETYLSALICYLIC ACID [Concomitant]
  5. DISOPYRAMIDE PHOSPHATE [Concomitant]
  6. ALLOPURINOL [Concomitant]
  7. LOSARTAN POTASSIUM [Concomitant]
  8. FEXOFENADINE HYDROCHLORIDE [Concomitant]
  9. FAMOTIDINE [Concomitant]
  10. ALPROSTADIL [Concomitant]

REACTIONS (5)
  - EOSINOPHIL COUNT INCREASED [None]
  - HAEMODIALYSIS [None]
  - HEPATITIS ACUTE [None]
  - MALAISE [None]
  - WHITE BLOOD CELL COUNT INCREASED [None]
